FAERS Safety Report 7649906-0 (Version None)
Quarter: 2011Q3

REPORT INFORMATION
  Report Type: 
  Country: None (occurrence: None)
  Receive Date: 20110802
  Receipt Date: 20080721
  Transmission Date: 20111222
  Serious: Yes (Death, Other)
  Sender: FDA-Public Use
  Company Number: US-BAYER-200817443NA

PATIENT
  Age: 68 Year
  Sex: Male

DRUGS (34)
  1. OMNISCAN [Suspect]
     Indication: NUCLEAR MAGNETIC RESONANCE IMAGING
     Route: 042
     Dates: start: 20040204, end: 20040204
  2. PROHANCE [Suspect]
     Route: 042
  3. DAILY-VITE [Concomitant]
  4. ZOCOR [Concomitant]
  5. CARDURA [Concomitant]
  6. ZAROXOLYN [Concomitant]
  7. EPO [Concomitant]
  8. ALLOPURINOL [Concomitant]
  9. MULTIHANCE [Suspect]
     Route: 042
  10. ATENOLOL [Concomitant]
  11. MAGNEVIST [Suspect]
     Dosage: UNK
     Dates: start: 20010620, end: 20010620
  12. INSULIN [Concomitant]
  13. SYNTHROID [Concomitant]
  14. OMNISCAN [Suspect]
     Route: 042
     Dates: start: 20040618, end: 20040618
  15. NIFEDIPINE [Concomitant]
  16. PACERONE [Concomitant]
  17. MAGNEVIST [Suspect]
     Indication: NUCLEAR MAGNETIC RESONANCE IMAGING
     Route: 042
     Dates: start: 20030709, end: 20030709
  18. OMNISCAN [Suspect]
     Route: 042
     Dates: start: 20040805, end: 20040805
  19. OPTIMARK [Suspect]
     Route: 042
  20. FUROSEMIDE [Concomitant]
  21. DIGOXIN [Concomitant]
  22. METOPROLOL TARTRATE [Concomitant]
  23. NIASPAN [Concomitant]
  24. KEPPRA [Concomitant]
  25. COUMADIN [Concomitant]
  26. SALSALATE [Concomitant]
  27. RENAGEL [Concomitant]
  28. TAMSULOSIN HCL [Concomitant]
  29. ACETYLSALICYLIC ACID SRT [Concomitant]
  30. OMNISCAN [Suspect]
     Route: 042
     Dates: start: 20040910, end: 20040910
  31. OMNISCAN [Suspect]
     Route: 042
     Dates: start: 20050120, end: 20050120
  32. OMNISCAN [Suspect]
     Dosage: UNK
     Dates: start: 20040123, end: 20040123
  33. SERTRALINE HYDROCHLORIDE [Concomitant]
  34. ROSIGLITAZONE [Concomitant]

REACTIONS (15)
  - PAIN [None]
  - DEPRESSION [None]
  - NEPHROGENIC SYSTEMIC FIBROSIS [None]
  - SKIN LESION [None]
  - JOINT LOCK [None]
  - INJURY [None]
  - SKIN ATROPHY [None]
  - MOBILITY DECREASED [None]
  - GENERAL PHYSICAL HEALTH DETERIORATION [None]
  - EMOTIONAL DISTRESS [None]
  - JOINT STIFFNESS [None]
  - EXTREMITY CONTRACTURE [None]
  - EXCORIATION [None]
  - EXTREMITY NECROSIS [None]
  - MUSCLE RIGIDITY [None]
